FAERS Safety Report 9236099 (Version 1)
Quarter: 2013Q2

REPORT INFORMATION
  Report Type: Spontaneous
  Country: US (occurrence: None)
  Receive Date: 20130416
  Receipt Date: 20130416
  Transmission Date: 20140414
  Serious: Yes (Hospitalization)
  Sender: FDA-Public Use
  Company Number: None

PATIENT
  Age: 89 Year
  Sex: Female
  Weight: 67.8 kg

DRUGS (13)
  1. RIVAROXABAN 15MG [Suspect]
     Indication: ANTICOAGULANT THERAPY
     Dosage: PRIOR TO ADMISSION
     Route: 048
  2. RIVAROXABAN 15MG [Suspect]
     Indication: ATRIAL FIBRILLATION
     Dosage: PRIOR TO ADMISSION
     Route: 048
  3. RIVAROXABAN 15MG [Suspect]
     Indication: PROPHYLAXIS
     Dosage: PRIOR TO ADMISSION
     Route: 048
  4. ASPIRIN [Suspect]
     Indication: ANTICOAGULANT THERAPY
     Dosage: PRIOR TO ADMISSION
     Route: 048
  5. ASPIRIN [Suspect]
     Indication: PROPHYLAXIS
     Dosage: PRIOR TO ADMISSION
     Route: 048
  6. ASPIRIN [Suspect]
     Indication: ATRIAL FIBRILLATION
     Dosage: PRIOR TO ADMISSION
     Route: 048
  7. LEVOTHYROXINE [Concomitant]
  8. TOVIAZ [Concomitant]
  9. LISINOPRIL [Concomitant]
  10. BUSPIRONE [Concomitant]
  11. LASIX [Concomitant]
  12. METOPROLOL ER [Concomitant]
  13. KLORCON [Concomitant]

REACTIONS (1)
  - Gastrointestinal haemorrhage [None]
